FAERS Safety Report 5648426-2 (Version None)
Quarter: 2008Q1

REPORT INFORMATION
  Report Type: 
  Country: None (occurrence: None)
  Receive Date: 20080303
  Receipt Date: 20080303
  Transmission Date: 20080703
  Serious: Yes (Hospitalization)
  Sender: FDA-Public Use
  Company Number: None

PATIENT
  Age: 71 Year
  Sex: Male

DRUGS (1)
  1. RITUXIMAB [Suspect]
     Indication: WALDENSTROM'S MACROGLOBULINAEMIA
     Dosage: 860MG IV
     Route: 042
     Dates: start: 20071114, end: 20071114

REACTIONS (8)
  - DISCOMFORT [None]
  - FEELING ABNORMAL [None]
  - INFUSION RELATED REACTION [None]
  - MYALGIA [None]
  - PRURITUS [None]
  - RASH [None]
  - RASH PRURITIC [None]
  - URTICARIA [None]
